FAERS Safety Report 25665645 (Version 1)
Quarter: 2025Q3

REPORT INFORMATION
  Report Type: Spontaneous
  Country: US (occurrence: US)
  Receive Date: 20250811
  Receipt Date: 20250811
  Transmission Date: 20251021
  Serious: Yes (Other)
  Sender: COLGATE
  Company Number: US-COLGATE PALMOLIVE COMPANY-20250801569

PATIENT
  Age: 3 Year
  Sex: Male
  Weight: 14.966 kg

DRUGS (2)
  1. CHILDRENS SILLY STRAWBERRY [Suspect]
     Active Substance: SODIUM MONOFLUOROPHOSPHATE
  2. WATERMELON SAVE THE ANIMALS [Suspect]
     Active Substance: SODIUM MONOFLUOROPHOSPHATE

REACTIONS (2)
  - Vomiting [Unknown]
  - Accidental exposure to product [Unknown]
